FAERS Safety Report 23900177 (Version 1)
Quarter: 2024Q2

REPORT INFORMATION
  Report Type: Spontaneous
  Country: US (occurrence: None)
  Receive Date: 20240526
  Receipt Date: 20240526
  Transmission Date: 20240716
  Serious: No
  Sender: FDA-Public Use
  Company Number: US-ROCHE-3350408

PATIENT
  Age: 61 Year
  Sex: Male

DRUGS (1)
  1. OCREVUS [Suspect]
     Active Substance: OCRELIZUMAB
     Indication: Multiple sclerosis
     Dosage: LAST INFUSION WAS ON 03/20/23.
     Route: 065
     Dates: start: 20201021

REACTIONS (3)
  - Therapeutic response decreased [Unknown]
  - Gait disturbance [Unknown]
  - Hypoaesthesia [Unknown]
